FAERS Safety Report 9417557 (Version 1)
Quarter: 2013Q3

REPORT INFORMATION
  Report Type: Report from Study
  Country: ES (occurrence: ES)
  Receive Date: 20130724
  Receipt Date: 20130724
  Transmission Date: 20140515
  Serious: Yes (Other)
  Sender: FDA-Public Use
  Company Number: ES-PFIZER INC-2013208598

PATIENT
  Age: 31 Year
  Sex: Female

DRUGS (2)
  1. EXEMESTANE [Suspect]
     Indication: BREAST CANCER
     Dosage: 25 MG, UNK
     Route: 048
     Dates: start: 20100211, end: 20121010
  2. TRIPTORELIN PAMOATE [Suspect]
     Indication: BREAST CANCER
     Dosage: 3.75 MG, EVERY FOUR WEEKS
     Route: 030
     Dates: start: 20100211, end: 20121010

REACTIONS (1)
  - Dysphonia [Recovered/Resolved]
